FAERS Safety Report 5392162-7 (Version None)
Quarter: 2007Q3

REPORT INFORMATION
  Report Type: 
  Country: None (occurrence: None)
  Receive Date: 20070720
  Receipt Date: 20070713
  Transmission Date: 20080115
  Serious: Yes (Death, Hospitalization)
  Sender: FDA-Public Use
  Company Number: ZA-AVENTIS-200711861GDDC

PATIENT
  Age: 58 Year
  Sex: Female

DRUGS (8)
  1. TAXOTERE [Suspect]
     Route: 042
     Dates: start: 20070118, end: 20070118
  2. CAPECITABINE [Suspect]
     Dosage: DOSE: 1250 MG/M2, TWICE PER DAY, DAYS 1-14 OF 3 WEEK CYCLE
     Route: 048
     Dates: start: 20070118
  3. ENALAPRIL MALEATE [Concomitant]
     Dates: start: 19960615
  4. HYDROCHLOROTHIAZIDE [Concomitant]
     Dates: start: 19960615
  5. NORVASC [Concomitant]
     Dates: start: 19960615
  6. METFORMIN HCL [Concomitant]
     Dates: start: 19960615
  7. GLYBURIDE [Concomitant]
     Dates: start: 19960615
  8. DEXAMETHASONE 0.5MG TAB [Concomitant]

REACTIONS (4)
  - ANAEMIA [None]
  - DIABETIC KETOACIDOSIS [None]
  - NEUTROPENIA [None]
  - SEPSIS [None]
